FAERS Safety Report 18905543 (Version 8)
Quarter: 2024Q4

REPORT INFORMATION
  Report Type: Report from Study
  Country: US (occurrence: US)
  Receive Date: 20210217
  Receipt Date: 20241126
  Transmission Date: 20250114
  Serious: Yes (Other)
  Sender: MYLAN
  Company Number: US-PFIZER INC-2021141814

PATIENT
  Sex: Female
  Weight: 46.7 kg

DRUGS (3)
  1. XALATAN [Suspect]
     Active Substance: LATANOPROST
     Indication: Glaucoma
     Dosage: 1 GTT DROPS, PM (PUT A DROP IN EYE AT EVERY NIGHT)
     Route: 047
  2. PREMARIN [Suspect]
     Active Substance: ESTROGENS, CONJUGATED
     Indication: Hormone replacement therapy
     Dosage: 1.25 MG, ALTERNATE DAY (ONE DAY AND THE NEXT DAY HALF OF THAT WHICH IS 0.625 MG)
     Route: 065
  3. PREMARIN [Suspect]
     Active Substance: ESTROGENS, CONJUGATED
     Dosage: 0.625 MG, ALTERNATE DAY (ONE DAY AND THE NEXT DAY HALF OF THAT WHICH IS 0.625 MG)
     Route: 065

REACTIONS (7)
  - Drug dependence [Unknown]
  - Hypertension [Unknown]
  - Hypersensitivity [Unknown]
  - Memory impairment [Unknown]
  - Crying [Unknown]
  - Insomnia [Unknown]
  - Hypotension [Unknown]
